FAERS Safety Report 15990426 (Version 1)
Quarter: 2019Q1

REPORT INFORMATION
  Report Type: Spontaneous
  Country: DE (occurrence: DE)
  Receive Date: 20190221
  Receipt Date: 20190221
  Transmission Date: 20190418
  Serious: Yes (Other)
  Sender: FDA-Public Use
  Company Number: DE-DRREDDYS-GER/GER/19/0107709

PATIENT
  Age: 0 Year
  Sex: Female
  Weight: 3.56 kg

DRUGS (1)
  1. FLUOXETINE [Suspect]
     Active Substance: FLUOXETINE HYDROCHLORIDE
     Indication: PRODUCT USED FOR UNKNOWN INDICATION
     Dosage: 10 [MG/D ]
     Route: 064
     Dates: start: 20170821, end: 20180516

REACTIONS (4)
  - Subdural hygroma [Unknown]
  - Seizure [Unknown]
  - Foetal exposure during pregnancy [Unknown]
  - Vomiting [Unknown]
